FAERS Safety Report 8205959-2 (Version None)
Quarter: 2012Q1

REPORT INFORMATION
  Report Type: 
  Country: None (occurrence: None)
  Receive Date: 20120309
  Receipt Date: 20120227
  Transmission Date: 20120608
  Serious: Yes (Hospitalization)
  Sender: FDA-Public Use
  Company Number: DSA_55279_2012

PATIENT
  Sex: Female

DRUGS (1)
  1. WELLBUTRIN [Suspect]
     Indication: DEPRESSION
     Dosage: (150 MG, DAILY ORAL)
     Route: 048
     Dates: start: 20110725, end: 20111120

REACTIONS (2)
  - BALANCE DISORDER [None]
  - DIZZINESS [None]
